FAERS Safety Report 5322909-7 (Version None)
Quarter: 2007Q2

REPORT INFORMATION
  Report Type: 
  Country: None (occurrence: None)
  Receive Date: 20070221
  Receipt Date: 20070108
  Transmission Date: 20071010
  Serious: Yes (Hospitalization, Other)
  Sender: FDA-Public Use
  Company Number: 33460

PATIENT
  Sex: Female
  Weight: 78 kg

DRUGS (4)
  1. METHOTREXATE [Suspect]
     Indication: BONE SARCOMA
     Dosage: 20G/IV/OVER 4 HOURS
     Route: 042
     Dates: start: 20061208
  2. METHOTREXATE [Suspect]
     Indication: BONE SARCOMA
     Dosage: 20G/IV/OVER 4 HOURS
     Route: 042
     Dates: start: 20061215
  3. METHOTREXATE [Suspect]
     Indication: BONE SARCOMA
     Dosage: 20G/IV/OVER 4 HOURS
     Route: 042
     Dates: start: 20060208
  4. METHOTREXATE [Suspect]
     Indication: BONE SARCOMA
     Dosage: 20G/IV/OVER 4 HOURS
     Route: 042
     Dates: start: 20061215

REACTIONS (1)
  - CONVULSION [None]
